FAERS Safety Report 6846228-2 (Version None)
Quarter: 2010Q3

REPORT INFORMATION
  Report Type: 
  Country: None (occurrence: None)
  Receive Date: 20100715
  Receipt Date: 20100706
  Transmission Date: 20110219
  Serious: Yes (Hospitalization)
  Sender: FDA-Public Use
  Company Number: JP-AMGEN-KDC422280

PATIENT
  Age: 56 Year
  Sex: Female
  Weight: 47 kg

DRUGS (11)
  1. VECTIBIX [Suspect]
     Indication: COLORECTAL CANCER
     Route: 041
     Dates: start: 20100622
  2. EMEND [Suspect]
     Route: 048
  3. OXALIPLATIN [Concomitant]
     Indication: COLORECTAL CANCER
     Route: 041
     Dates: start: 20100622
  4. FLUOROURACIL [Concomitant]
     Indication: COLORECTAL CANCER
     Route: 040
     Dates: start: 20100622
  5. FLUOROURACIL [Concomitant]
     Route: 041
     Dates: start: 20100622
  6. CALCIUM LEVOFOLINATE [Concomitant]
     Indication: COLORECTAL CANCER
     Route: 041
     Dates: start: 20100622
  7. KYTRIL [Concomitant]
     Route: 042
  8. CONIEL [Concomitant]
     Route: 048
  9. ACTOS TABLETS 30 [Concomitant]
     Route: 048
  10. BASEN TABLETS 0.2 [Concomitant]
     Route: 048
  11. CORTICOSTEROIDS [Concomitant]
     Indication: PROPHYLAXIS
     Route: 065

REACTIONS (1)
  - URINARY RETENTION [None]
